FAERS Safety Report 9009266 (Version 1)
Quarter: 2013Q1

REPORT INFORMATION
  Report Type: Report from Study
  Country: US (occurrence: US)
  Receive Date: 20130111
  Receipt Date: 20130111
  Transmission Date: 20140127
  Serious: Yes (Other)
  Sender: FDA-Public Use
  Company Number: US-GLAXOSMITHKLINE-A1007893A

PATIENT
  Age: 66 Year
  Sex: Female
  Weight: 51.4 kg

DRUGS (7)
  1. LAPATINIB [Suspect]
     Indication: BREAST CANCER METASTATIC
     Dosage: 1000MG PER DAY
     Route: 048
     Dates: start: 20121219, end: 20121228
  2. TRASTUZUMAB [Suspect]
     Indication: BREAST CANCER METASTATIC
     Dosage: 8MGK EVERY 3 WEEKS
     Route: 042
     Dates: start: 20121219, end: 20121219
  3. VITAMIN D CALCIUM [Concomitant]
  4. FLONASE [Concomitant]
  5. MICARDIS [Concomitant]
  6. REFRESH TEARS [Concomitant]
  7. CLARITIN [Concomitant]

REACTIONS (2)
  - Rash maculo-papular [Recovering/Resolving]
  - Pyrexia [Recovered/Resolved]
